FAERS Safety Report 9520631 (Version 5)
Quarter: 2014Q1

REPORT INFORMATION
  Report Type: Spontaneous
  Country: US (occurrence: US)
  Receive Date: 20130913
  Receipt Date: 20140326
  Transmission Date: 20141002
  Serious: Yes (Death, Hospitalization, Other)
  Sender: FDA-Public Use
  Company Number: US-JNJFOC-20130904624

PATIENT
  Age: 25 Year
  Sex: Female
  Weight: 68.04 kg

DRUGS (10)
  1. EXTRA STRENGTH TYLENOL [Suspect]
     Indication: INFLUENZA
     Dosage: RECOMMENDED DAILY DOSE
     Route: 065
     Dates: start: 20100525, end: 20100530
  2. EXTRA STRENGTH TYLENOL [Suspect]
     Indication: ABDOMINAL PAIN UPPER
     Dosage: RECOMMENDED DAILY DOSE
     Route: 065
     Dates: start: 20100525, end: 20100530
  3. EXTRA STRENGTH TYLENOL [Suspect]
     Indication: MALAISE
     Dosage: RECOMMENDED DAILY DOSE
     Route: 065
     Dates: start: 20100525, end: 20100530
  4. REGULAR STRENGTH TYLENOL [Suspect]
     Route: 065
  5. REGULAR STRENGTH TYLENOL [Suspect]
     Indication: PRODUCT USED FOR UNKNOWN INDICATION
     Route: 065
     Dates: start: 2010, end: 20100601
  6. TYLENOL PM [Suspect]
     Indication: PRODUCT USED FOR UNKNOWN INDICATION
     Route: 065
     Dates: start: 2010, end: 20100601
  7. TYLENOL EXTRA STRENGTH NIGHTTIME [Suspect]
     Indication: PRODUCT USED FOR UNKNOWN INDICATION
     Route: 065
     Dates: start: 2010, end: 20100601
  8. LORTAB [Concomitant]
     Indication: ABDOMINAL PAIN UPPER
     Route: 065
  9. LORTAB [Concomitant]
     Indication: MALAISE
     Route: 065
  10. SEASONIQUE [Concomitant]
     Indication: PRODUCT USED FOR UNKNOWN INDICATION
     Dosage: LAST TAKEN: 05-MAY-2010
     Route: 048

REACTIONS (10)
  - Hepatic necrosis [Fatal]
  - Acute hepatic failure [Fatal]
  - Anaemia [Unknown]
  - Respiratory failure [Unknown]
  - Hepatic encephalopathy [Unknown]
  - Coagulopathy [Unknown]
  - Overdose [Fatal]
  - Toxicity to various agents [Fatal]
  - Brain oedema [Fatal]
  - Brain herniation [Fatal]
